FAERS Safety Report 8852780 (Version 5)
Quarter: 2012Q4

REPORT INFORMATION
  Report Type: 
  Country: US (occurrence: US)
  Receive Date: 20121022
  Receipt Date: 20121204
  Transmission Date: 20130627
  Serious: No
  Sender: FDA-Public Use
  Company Number: US-PFIZER INC-2012202204

PATIENT
  Age: 60 Year
  Sex: Female
  Weight: 58.96 kg

DRUGS (2)
  1. LATANOPROST [Suspect]
     Indication: PRIMARY OPEN ANGLE GLAUCOMA
     Dosage: 1 drop in each eye every night
     Route: 061
     Dates: start: 20110509, end: 20110728
  2. LATANOPROST [Suspect]
     Indication: INTRAOCULAR PRESSURE RAISED

REACTIONS (2)
  - Intraocular pressure increased [Recovered/Resolved]
  - Drug ineffective [Recovered/Resolved]
